FAERS Safety Report 18037564 (Version 1)
Quarter: 2020Q3

REPORT INFORMATION
  Report Type: Spontaneous
  Country: ES (occurrence: ES)
  Receive Date: 20200717
  Receipt Date: 20200717
  Transmission Date: 20201103
  Serious: Yes (Life-Threatening, Hospitalization)
  Sender: FDA-Public Use
  Company Number: ES-ROCHE-2642749

PATIENT
  Age: 64 Year
  Sex: Male

DRUGS (6)
  1. LOPINAVIR/RITONAVIR [Concomitant]
     Active Substance: LOPINAVIR\RITONAVIR
     Dosage: STRENGTH: 200 MG /50 MG
     Route: 048
     Dates: start: 20200326, end: 20200406
  2. HIDROXICLOROQUINA SULFATO [Concomitant]
     Active Substance: HYDROXYCHLOROQUINE SULFATE
     Route: 048
     Dates: start: 20200326, end: 20200401
  3. LEVOFLOXACINO [Concomitant]
     Active Substance: LEVOFLOXACIN
     Dosage: 500 MG INJECTABLE INFUSION 100 ML
     Route: 042
     Dates: start: 20200330, end: 20200409
  4. CEFTRIAXONA [Concomitant]
     Active Substance: CEFTRIAXONE
     Route: 042
     Dates: start: 20200326, end: 20200406
  5. TOCILIZUMAB. [Suspect]
     Active Substance: TOCILIZUMAB
     Indication: COVID-19 PNEUMONIA
     Dosage: LAST DOSE RECEIVED ON 31/MAR/2020
     Route: 042
     Dates: start: 20200331
  6. AZITROMICINA [Concomitant]
     Active Substance: AZITHROMYCIN DIHYDRATE
     Route: 048
     Dates: start: 20200326, end: 20200330

REACTIONS (1)
  - Agranulocytosis [Recovered/Resolved]

NARRATIVE: CASE EVENT DATE: 20200409
